FAERS Safety Report 22368676 (Version 1)
Quarter: 2023Q2

REPORT INFORMATION
  Report Type: Spontaneous
  Country: DE (occurrence: DE)
  Receive Date: 20230525
  Receipt Date: 20230525
  Transmission Date: 20230722
  Serious: Yes (Other)
  Sender: FDA-Public Use
  Company Number: DE-BRISTOL-MYERS SQUIBB COMPANY-2023-072186

PATIENT

DRUGS (2)
  1. ELIQUIS [Suspect]
     Active Substance: APIXABAN
     Indication: Cerebrovascular accident prophylaxis
     Dosage: FREQ : UNAVAILABLE
  2. ELIQUIS [Suspect]
     Active Substance: APIXABAN

REACTIONS (1)
  - Thrombocytopenia [Unknown]
